FAERS Safety Report 16766272 (Version 3)
Quarter: 2021Q1

REPORT INFORMATION
  Report Type: Spontaneous
  Country: US (occurrence: US)
  Receive Date: 20190903
  Receipt Date: 20210309
  Transmission Date: 20210419
  Serious: Yes (Other)
  Sender: FDA-Public Use
  Company Number: US-GILEAD-2019-0425750

PATIENT
  Age: 65 Year
  Sex: Male
  Weight: 92.97 kg

DRUGS (43)
  1. SIMVASTATIN. [Concomitant]
     Active Substance: SIMVASTATIN
  2. CORTISONE [Concomitant]
     Active Substance: CORTISONE
  3. EDURANT [Concomitant]
     Active Substance: RILPIVIRINE HYDROCHLORIDE
  4. CELESTONE [Concomitant]
     Active Substance: BETAMETHASONE
  5. MATURE MULTIVITAMINS [Concomitant]
  6. CHERATUSSIN [Concomitant]
     Active Substance: AMMONIUM CHLORIDE\DEXTROMETHORPHAN\SODIUM CITRATE
  7. ATORVASTATIN [Concomitant]
     Active Substance: ATORVASTATIN
  8. TRIAMCINOLONE [Concomitant]
     Active Substance: TRIAMCINOLONE
  9. EPIVIR [Concomitant]
     Active Substance: LAMIVUDINE
  10. QVAR [Concomitant]
     Active Substance: BECLOMETHASONE DIPROPIONATE
  11. LISINOPRIL. [Concomitant]
     Active Substance: LISINOPRIL
  12. CEFTIN [Concomitant]
     Active Substance: CEFUROXIME AXETIL
  13. POLYMYXIN B. [Concomitant]
     Active Substance: POLYMYXIN B
  14. ATRIPLA [Suspect]
     Active Substance: EFAVIRENZ\EMTRICITABINE\TENOFOVIR DISOPROXIL FUMARATE
     Indication: HIV INFECTION
     Dosage: UNK
     Route: 048
     Dates: start: 2013, end: 20170707
  15. FLEET LAXATIVE [Concomitant]
  16. TIVICAY [Concomitant]
     Active Substance: DOLUTEGRAVIR SODIUM
  17. PREVAGEN [Concomitant]
     Active Substance: DIETARY SUPPLEMENT
  18. VITAMIN B COMPLEX [Concomitant]
     Active Substance: CYANOCOBALAMIN\DEXPANTHENOL\NIACINAMIDE\PYRIDOXINE HYDROCHLORIDE\RIBOFLAVIN 5^-PHOSPHATE SODIUM\THIAMINE HYDROCHLORIDE\VITAMIN B COMPLEX
  19. MELOXICAM. [Concomitant]
     Active Substance: MELOXICAM
  20. ACYCLOVIR [ACICLOVIR SODIUM] [Concomitant]
     Active Substance: ACYCLOVIR
  21. TYLENOL [Concomitant]
     Active Substance: ACETAMINOPHEN
  22. CEFUROXIME AXETIL. [Concomitant]
     Active Substance: CEFUROXIME AXETIL
  23. ATRIPLA [Suspect]
     Active Substance: EFAVIRENZ\EMTRICITABINE\TENOFOVIR DISOPROXIL FUMARATE
     Dosage: UNK
     Route: 048
     Dates: start: 20121226, end: 201709
  24. JULUCA [Concomitant]
     Active Substance: DOLUTEGRAVIR SODIUM\RILPIVIRINE HYDROCHLORIDE
  25. CONCERTA [Concomitant]
     Active Substance: METHYLPHENIDATE HYDROCHLORIDE
  26. CALCIUM [Concomitant]
     Active Substance: CALCIUM
  27. PENLAC [Concomitant]
     Active Substance: CICLOPIROX
  28. VIAGRA [Concomitant]
     Active Substance: SILDENAFIL CITRATE
  29. MUSE [Concomitant]
     Active Substance: ALPROSTADIL
  30. RITALIN [Concomitant]
     Active Substance: METHYLPHENIDATE HYDROCHLORIDE
  31. AZITHROMYCIN ANHYDROUS. [Concomitant]
     Active Substance: AZITHROMYCIN ANHYDROUS
  32. VITAMIN D [Concomitant]
     Active Substance: VITAMIN D NOS
  33. PAPAVERINE [Concomitant]
     Active Substance: PAPAVERINE
  34. ASPIRIN (E.C.) [Concomitant]
     Active Substance: ASPIRIN
  35. PENICILLIN NOS [Concomitant]
     Active Substance: PENICILLIN
  36. PROSCAR [Concomitant]
     Active Substance: FINASTERIDE
  37. FINASTERIDE. [Concomitant]
     Active Substance: FINASTERIDE
  38. ZITHROMAX [Concomitant]
     Active Substance: AZITHROMYCIN DIHYDRATE
  39. TRIMETHOPRIM. [Concomitant]
     Active Substance: TRIMETHOPRIM
  40. LEVITRA [Concomitant]
     Active Substance: VARDENAFIL HYDROCHLORIDE
  41. LOTRIMIN [Concomitant]
     Active Substance: CLOTRIMAZOLE
  42. PROAIR HFA [Concomitant]
     Active Substance: ALBUTEROL SULFATE
  43. OFLOXACIN. [Concomitant]
     Active Substance: OFLOXACIN

REACTIONS (9)
  - Chronic kidney disease [Not Recovered/Not Resolved]
  - Anhedonia [Unknown]
  - Economic problem [Unknown]
  - Acute kidney injury [Unknown]
  - Blood creatinine increased [Not Recovered/Not Resolved]
  - Anxiety [Unknown]
  - Pain [Unknown]
  - Proteinuria [Unknown]
  - Emotional distress [Unknown]

NARRATIVE: CASE EVENT DATE: 201707
